FAERS Safety Report 20816982 (Version 4)
Quarter: 2022Q2

REPORT INFORMATION
  Report Type: Report from Study
  Country: AU (occurrence: AU)
  Receive Date: 20220512
  Receipt Date: 20220622
  Transmission Date: 20220721
  Serious: Yes (Hospitalization, Other)
  Sender: FDA-Public Use
  Company Number: AU-BRISTOL-MYERS SQUIBB COMPANY-2022-029436

PATIENT
  Sex: Male
  Weight: 115.2 kg

DRUGS (21)
  1. LENALIDOMIDE [Suspect]
     Active Substance: LENALIDOMIDE
     Indication: Plasma cell myeloma
     Route: 048
     Dates: start: 20211116, end: 20220316
  2. DARATUMUMAB [Suspect]
     Active Substance: DARATUMUMAB
     Indication: Plasma cell myeloma
     Route: 058
     Dates: start: 20211026, end: 20220303
  3. TECLISTAMAB [Suspect]
     Active Substance: TECLISTAMAB
     Indication: Plasma cell myeloma
     Route: 058
     Dates: start: 20211027, end: 20220317
  4. CROSUVA [Concomitant]
     Indication: Hypercholesterolaemia
     Route: 048
     Dates: start: 20210601
  5. CROSUVA [Concomitant]
     Indication: Thrombosis prophylaxis
     Dosage: 1 IN 1 D
     Route: 048
  6. MAGNESIUM ASPARTATE [Concomitant]
     Active Substance: MAGNESIUM ASPARTATE
     Indication: Muscle spasms
     Dosage: AS NEEDED
     Route: 048
     Dates: start: 20210801
  7. MAGNESIUM ASPARTATE [Concomitant]
     Active Substance: MAGNESIUM ASPARTATE
     Indication: Hypercholesterolaemia
  8. BACTRIM [Concomitant]
     Active Substance: SULFAMETHOXAZOLE\TRIMETHOPRIM
     Indication: Pneumocystis jirovecii pneumonia
     Dosage: 160/800 (NO UNIT), TIW (3 IN 1 WEEK)
     Route: 048
     Dates: start: 20211027
  9. BACTRIM [Concomitant]
     Active Substance: SULFAMETHOXAZOLE\TRIMETHOPRIM
     Indication: Prophylaxis
  10. MOLNUPIRAVIR [Concomitant]
     Active Substance: MOLNUPIRAVIR
     Indication: COVID-19 prophylaxis
     Route: 048
     Dates: start: 20220323, end: 20220327
  11. OMEPRAZOLE [Concomitant]
     Active Substance: OMEPRAZOLE
     Indication: Gastrooesophageal reflux prophylaxis
     Route: 048
     Dates: start: 20211012
  12. ZAN-EXTRA(ENALAPRIL MALEATE, LERCANIDIPINE HYDROCHLORIDE) [Concomitant]
     Indication: Hypertension
     Dosage: 10/20 (NO UNIT)
     Route: 048
     Dates: start: 2018
  13. DOCUSATE SODIUM\SENNOSIDES A AND B [Concomitant]
     Active Substance: DOCUSATE SODIUM\SENNOSIDES A AND B
     Indication: Constipation
     Dosage: 2 DOSAGE FORMS (2 DOSAGE FORMS,1 IN 1 AS REQUIRED)
     Route: 048
     Dates: start: 20211031
  14. ERGOCALCIFEROL [Concomitant]
     Active Substance: ERGOCALCIFEROL
     Indication: Nutritional supplementation
     Route: 048
     Dates: start: 20210601
  15. ASPIRIN [Concomitant]
     Active Substance: ASPIRIN
     Indication: Thrombosis prophylaxis
     Route: 048
     Dates: start: 20210601
  16. VALACYCLOVIR HYDROCHLORIDE [Concomitant]
     Active Substance: VALACYCLOVIR HYDROCHLORIDE
     Indication: Antiviral prophylaxis
     Route: 048
     Dates: start: 20211027
  17. ASTRAZENECA COVID-19 VACCINE [Concomitant]
     Active Substance: AZD-1222
     Indication: COVID-19 prophylaxis
     Dosage: 1 IN 1 TOTAL
     Route: 065
     Dates: start: 20210412, end: 20210412
  18. ASTRAZENECA COVID-19 VACCINE [Concomitant]
     Active Substance: AZD-1222
     Dosage: 1 IN 1 TOTAL
     Route: 065
     Dates: start: 20210609, end: 20210609
  19. COVID-19 VACCINE [Concomitant]
     Indication: COVID-19 prophylaxis
     Dosage: (1 IN 1 TOTAL)
     Route: 065
     Dates: start: 20211220, end: 20211220
  20. ASPIRIN [Concomitant]
     Active Substance: ASPIRIN
     Indication: Thrombosis prophylaxis
     Dosage: 1 IN 1 AS REQUIRED
     Dates: start: 20210609, end: 20210609
  21. ASPIRIN [Concomitant]
     Active Substance: ASPIRIN
     Indication: COVID-19 prophylaxis
     Dosage: 1 IN 1 TOTAL
     Dates: start: 20211220, end: 20211220

REACTIONS (2)
  - Pneumonia [Recovered/Resolved]
  - COVID-19 pneumonia [Recovered/Resolved]

NARRATIVE: CASE EVENT DATE: 20220407
